FAERS Safety Report 24063276 (Version 1)
Quarter: 2024Q3

REPORT INFORMATION
  Report Type: Spontaneous
  Country: PT (occurrence: PT)
  Receive Date: 20240709
  Receipt Date: 20240709
  Transmission Date: 20241017
  Serious: Yes (Other)
  Sender: NOVARTIS
  Company Number: None

PATIENT
  Age: 63 Year
  Sex: Female
  Weight: 56 kg

DRUGS (3)
  1. LETROZOLE [Suspect]
     Active Substance: LETROZOLE
     Indication: Breast cancer
     Dosage: 2.5 MG, Q24H (POR DIA)
     Route: 048
     Dates: start: 20240622, end: 20240624
  2. CALCIO + VITAMINA D [Concomitant]
     Indication: Product used for unknown indication
     Dosage: UNK
     Route: 065
  3. CALCIO + VITAMINA D [Concomitant]
     Dosage: UNK
     Route: 065

REACTIONS (2)
  - Product substitution issue [Recovered/Resolved]
  - Rash [Recovered/Resolved]
